FAERS Safety Report 4554474-6 (Version None)
Quarter: 2005Q1

REPORT INFORMATION
  Report Type: 
  Country: None (occurrence: None)
  Receive Date: 20050114
  Receipt Date: 20031021
  Transmission Date: 20050727
  Serious: Yes (Life-Threatening, Hospitalization)
  Sender: FDA-Public Use
  Company Number: GXKR2003DK00548

PATIENT
  Age: 70 Year
  Sex: Male

DRUGS (5)
  1. METFORMIN HCL [Suspect]
     Indication: DIABETES MELLITUS NON-INSULIN-DEPENDENT
     Dosage: 63 G, ONCE/SINGLE
  2. THIAZIDES (NO INGREDIENTS/SUBSTANCES) [Concomitant]
  3. RAMIPRIL [Concomitant]
  4. GLIMEPIRIDE [Concomitant]
  5. ACETYLCYSTEINE [Concomitant]

REACTIONS (13)
  - ACIDOSIS [None]
  - BLOOD LACTIC ACID DECREASED [None]
  - BLOOD PRESSURE ABNORMAL [None]
  - BLOOD PRESSURE DECREASED [None]
  - BLOOD PRESSURE SYSTOLIC INCREASED [None]
  - HAEMODIALYSIS [None]
  - HEART RATE INCREASED [None]
  - HYPERVENTILATION [None]
  - HYPOGLYCAEMIA [None]
  - HYPOTHERMIA [None]
  - INTENTIONAL MISUSE [None]
  - LOSS OF CONSCIOUSNESS [None]
  - RENAL IMPAIRMENT [None]
